FAERS Safety Report 6341362-8 (Version None)
Quarter: 2009Q3

REPORT INFORMATION
  Report Type: 
  Country: None (occurrence: None)
  Receive Date: 20090904
  Receipt Date: 20090824
  Transmission Date: 20100115
  Serious: Yes (Other)
  Sender: FDA-Public Use
  Company Number: IE-PFIZER INC-2009239358

PATIENT
  Age: 54 Year

DRUGS (5)
  1. LYRICA [Suspect]
     Dosage: 150 MG, 1X/DAY
     Dates: start: 20090101
  2. COVERSYL [Concomitant]
     Dosage: 10 MG, UNK
  3. NEXIUM [Concomitant]
     Dosage: 40 MG, UNK
  4. PAROXETINE [Concomitant]
     Dosage: 80 MG, UNK
  5. LEXATIN [Concomitant]
     Dosage: 9 MG, UNK

REACTIONS (2)
  - PARKINSON'S DISEASE [None]
  - SEBORRHOEA [None]
